FAERS Safety Report 6238230-9 (Version None)
Quarter: 2009Q2

REPORT INFORMATION
  Report Type: 
  Country: None (occurrence: None)
  Receive Date: 20090617
  Receipt Date: 20090617
  Transmission Date: 20091009
  Serious: Yes (Other)
  Sender: FDA-Public Use
  Company Number: None

PATIENT
  Age: 21 Year
  Sex: Male
  Weight: 52.1637 kg

DRUGS (1)
  1. RISPERADONE 2 MG TAB GENERIC [Suspect]
     Indication: PSYCHOTIC DISORDER
     Dosage: 1 MG BID PO
     Route: 048
     Dates: start: 20090526, end: 20090601

REACTIONS (8)
  - AGITATION [None]
  - CHEST PAIN [None]
  - DYSPNOEA [None]
  - ENURESIS [None]
  - HYPERGLYCAEMIA [None]
  - INSOMNIA [None]
  - POLYURIA [None]
  - RESTLESSNESS [None]
